FAERS Safety Report 8739476 (Version 57)
Quarter: 2018Q4

REPORT INFORMATION
  Report Type: Report from Study
  Country: CA (occurrence: CA)
  Receive Date: 20120823
  Receipt Date: 20181213
  Transmission Date: 20190205
  Serious: Yes (Hospitalization, Other)
  Sender: FDA-Public Use
  Company Number: CA-ROCHE-1054299

PATIENT
  Age: 63 Year
  Sex: Male
  Weight: 61 kg

DRUGS (11)
  1. ACTEMRA [Suspect]
     Active Substance: TOCILIZUMAB
     Indication: RHEUMATOID ARTHRITIS
     Route: 058
     Dates: start: 20170815
  2. ACTEMRA [Suspect]
     Active Substance: TOCILIZUMAB
     Indication: RHEUMATOID ARTHRITIS
     Route: 042
     Dates: start: 20111104
  3. ARAVA [Concomitant]
     Active Substance: LEFLUNOMIDE
  4. SPIRIVA [Concomitant]
     Active Substance: TIOTROPIUM BROMIDE MONOHYDRATE
  5. VENTOLIN [Concomitant]
     Active Substance: ALBUTEROL SULFATE
  6. TYLENOL WITH CODEINE [Concomitant]
     Active Substance: ACETAMINOPHEN\CODEINE PHOSPHATE
     Route: 065
  7. OXYCONTIN [Concomitant]
     Active Substance: OXYCODONE HYDROCHLORIDE
  8. PREDNISONE. [Concomitant]
     Active Substance: PREDNISONE
     Route: 065
  9. ACTEMRA [Suspect]
     Active Substance: TOCILIZUMAB
     Route: 042
     Dates: start: 20110620
  10. ACTEMRA [Suspect]
     Active Substance: TOCILIZUMAB
     Route: 042
     Dates: start: 20150410, end: 20170221
  11. METHOTREXATE. [Concomitant]
     Active Substance: METHOTREXATE

REACTIONS (58)
  - Coeliac disease [Not Recovered/Not Resolved]
  - Pain [Not Recovered/Not Resolved]
  - Peripheral swelling [Not Recovered/Not Resolved]
  - Arthralgia [Unknown]
  - Incision site ulcer [Unknown]
  - Lung infection [Recovering/Resolving]
  - Hypotension [Unknown]
  - Confusional state [Recovered/Resolved]
  - Musculoskeletal stiffness [Not Recovered/Not Resolved]
  - Joint swelling [Not Recovered/Not Resolved]
  - Weight decreased [Not Recovered/Not Resolved]
  - Arthralgia [Not Recovered/Not Resolved]
  - Chronic obstructive pulmonary disease [Not Recovered/Not Resolved]
  - Gastric ulcer perforation [Recovering/Resolving]
  - Ear infection fungal [Unknown]
  - Vomiting [Not Recovered/Not Resolved]
  - Diarrhoea [Not Recovered/Not Resolved]
  - Drug ineffective [Unknown]
  - Oxygen saturation decreased [Unknown]
  - Urinary tract infection [Not Recovered/Not Resolved]
  - Hypertension [Recovered/Resolved]
  - Hyperhidrosis [Not Recovered/Not Resolved]
  - Contusion [Unknown]
  - Pain [Unknown]
  - Blood pressure increased [Unknown]
  - Prostatomegaly [Not Recovered/Not Resolved]
  - Intestinal ulcer [Recovering/Resolving]
  - Rheumatoid arthritis [Not Recovered/Not Resolved]
  - Lower respiratory tract congestion [Recovered/Resolved]
  - Abdominal pain upper [Not Recovered/Not Resolved]
  - Food allergy [Not Recovered/Not Resolved]
  - Cough [Unknown]
  - Oxygen saturation decreased [Unknown]
  - Productive cough [Unknown]
  - Hypotension [Recovering/Resolving]
  - Arthralgia [Not Recovered/Not Resolved]
  - Intestinal perforation [Unknown]
  - Hernia [Unknown]
  - Lung disorder [Not Recovered/Not Resolved]
  - Infected bite [Recovered/Resolved]
  - Abdominal pain upper [Unknown]
  - Dyspnoea [Not Recovered/Not Resolved]
  - Arthritis [Not Recovered/Not Resolved]
  - Joint stiffness [Not Recovered/Not Resolved]
  - Weight increased [Unknown]
  - Body temperature decreased [Unknown]
  - Heart rate increased [Unknown]
  - Emphysema [Not Recovered/Not Resolved]
  - Headache [Unknown]
  - Blood pressure increased [Recovering/Resolving]
  - Wheezing [Unknown]
  - Tendon rupture [Unknown]
  - Dehydroepiandrosterone decreased [Unknown]
  - Staphylococcal infection [Recovered/Resolved]
  - Weight fluctuation [Not Recovered/Not Resolved]
  - Rash [Not Recovered/Not Resolved]
  - Impaired healing [Unknown]
  - Tendinous contracture [Unknown]

NARRATIVE: CASE EVENT DATE: 2012
